FAERS Safety Report 17552381 (Version 2)
Quarter: 2020Q1

REPORT INFORMATION
  Report Type: Report from Study
  Country: US (occurrence: US)
  Receive Date: 20200317
  Receipt Date: 20200323
  Transmission Date: 20200409
  Serious: Yes (Hospitalization)
  Sender: FDA-Public Use
  Company Number: US-ACTELION-A-NJ2019-197757

PATIENT
  Age: 36 Year
  Sex: Female
  Weight: 140.59 kg

DRUGS (3)
  1. OXYGEN. [Suspect]
     Active Substance: OXYGEN
     Indication: PRODUCT USED FOR UNKNOWN INDICATION
     Route: 065
  2. ADCIRCA [Concomitant]
     Active Substance: TADALAFIL
  3. OPSUMIT [Suspect]
     Active Substance: MACITENTAN
     Indication: PULMONARY ARTERIAL HYPERTENSION
     Dosage: 10 MG, QD
     Route: 048
     Dates: start: 20191021

REACTIONS (11)
  - Oropharyngeal pain [Unknown]
  - Back pain [Unknown]
  - Dyspnoea [Unknown]
  - Pneumonia [Unknown]
  - Nasal congestion [Unknown]
  - Vomiting [Unknown]
  - Cough [Unknown]
  - Product dose omission [Unknown]
  - Chest pain [Unknown]
  - Retching [Unknown]
  - Dizziness [Unknown]

NARRATIVE: CASE EVENT DATE: 20200306
